FAERS Safety Report 10009568 (Version 2)
Quarter: 2014Q1

REPORT INFORMATION
  Report Type: Spontaneous
  Country: US (occurrence: US)
  Receive Date: 20140312
  Receipt Date: 20140312
  Transmission Date: 20141002
  Serious: No
  Sender: FDA-Public Use
  Company Number: US-INCYTE CORPORATION-2012IN001743

PATIENT
  Age: 71 Year
  Sex: Male

DRUGS (21)
  1. JAKAFI [Suspect]
     Indication: MYELOFIBROSIS
     Dosage: 20 MG, BID
     Route: 048
  2. OMEPRAZOLE [Concomitant]
  3. EFFEXOR [Concomitant]
     Dosage: 75 MG, QD
  4. CELEXA [Concomitant]
     Dosage: 20 MG, QD
  5. PREDNISONE [Concomitant]
     Dosage: 5 MG, MWF
  6. FOLIC ACID [Concomitant]
     Dosage: 1 MG, QD
  7. FUROSEMIDE [Concomitant]
     Dosage: 40 MG, QD
  8. POTASSIUM CHLORIDE [Concomitant]
     Dosage: UNK, QD
  9. FERROUS SULFATE [Concomitant]
  10. ASPIRIN [Concomitant]
     Dosage: 81 MG, UNK
  11. FLOMAX [Concomitant]
     Dosage: 0.4 MG, QD
  12. ZESTRIL [Concomitant]
     Dosage: 2.5 MG, QD
  13. PROTONIX [Concomitant]
     Dosage: 40 MG, QD
  14. PROMETHAZINE [Concomitant]
     Dosage: 25 MG, QD
  15. FLEXERIL [Concomitant]
     Dosage: 10 MG, PRN
  16. ANTIVERT [Concomitant]
     Dosage: 25 MG, QD
  17. ALDACTONE [Concomitant]
     Dosage: 12.5 MG, QD
  18. TOPROL XL [Concomitant]
     Dosage: 50 MG, QD
  19. AMILORIDE [Concomitant]
     Dosage: 200 MG, BID
  20. PRAVASTATIN [Concomitant]
     Dosage: 20 MG, QD
  21. LORTAB [Concomitant]
     Dosage: 10 MG, Q4-6H

REACTIONS (5)
  - Diarrhoea [Not Recovered/Not Resolved]
  - Decreased appetite [Not Recovered/Not Resolved]
  - Nausea [Not Recovered/Not Resolved]
  - Vomiting [Not Recovered/Not Resolved]
  - Headache [Unknown]
